FAERS Safety Report 8509413 (Version 4)
Quarter: 2012Q4

REPORT INFORMATION
  Report Type: Report from Study
  Country: DE (occurrence: DE)
  Receive Date: 20120413
  Receipt Date: 20121219
  Transmission Date: 20130627
  Serious: Yes (Hospitalization)
  Sender: FDA-Public Use
  Company Number: DE-BIOGENIDEC-2012BI012012

PATIENT
  Age: 47 Year
  Sex: Male
  Weight: 95 kg

DRUGS (3)
  1. TYSABRI [Suspect]
     Indication: MULTIPLE SCLEROSIS
     Route: 042
     Dates: start: 20081110
  2. ANTIDEPRESSANT (NOS) [Concomitant]
  3. BENZODIAZEPINE [Concomitant]

REACTIONS (2)
  - Escherichia urinary tract infection [Recovered/Resolved]
  - Prostatitis [Recovered/Resolved]
